FAERS Safety Report 9558448 (Version 1)
Quarter: 2013Q3

REPORT INFORMATION
  Report Type: Spontaneous
  Country: US (occurrence: US)
  Receive Date: 20130926
  Receipt Date: 20130926
  Transmission Date: 20140515
  Serious: No
  Sender: FDA-Public Use
  Company Number: US-BIOGENIDEC-2013BI043420

PATIENT
  Age: 45 Year
  Sex: Female

DRUGS (6)
  1. TECFIDERA [Suspect]
     Indication: MULTIPLE SCLEROSIS
     Route: 048
     Dates: start: 20130503
  2. VITAMIN D [Concomitant]
  3. TYROID MEDICATION [Concomitant]
     Dates: start: 20130509
  4. FLAX SEED OIL [Concomitant]
  5. DROSPIRENONE [Concomitant]
  6. BIRTH CONTROL [Concomitant]

REACTIONS (6)
  - Abdominal distension [Not Recovered/Not Resolved]
  - Aphagia [Unknown]
  - Weight decreased [Unknown]
  - Abdominal pain upper [Recovered/Resolved]
  - Nausea [Not Recovered/Not Resolved]
  - Flushing [Not Recovered/Not Resolved]
